FAERS Safety Report 7884412-X (Version None)
Quarter: 2011Q4

REPORT INFORMATION
  Report Type: 
  Country: None (occurrence: None)
  Receive Date: 20111102
  Receipt Date: 20110923
  Transmission Date: 20120403
  Serious: Yes (Other)
  Sender: FDA-Public Use
  Company Number: US-ASTRAZENECA-2011SE41035

PATIENT
  Age: 60 Year
  Sex: Male
  Weight: 88 kg

DRUGS (5)
  1. KLOR-CON [Concomitant]
     Dosage: 10 MEQ, TWO TIMES A DAY
     Route: 048
  2. LOMOTIL [Concomitant]
     Dosage: 2.5-0.25 MG/ 5 ML AS NEEDED
     Route: 048
  3. VANDETANIB [Suspect]
     Indication: THYROID CANCER
     Route: 048
     Dates: start: 20110620
  4. SYNTHROID [Concomitant]
     Route: 048
  5. ACETAMINOPHEN AND HYDROCODONE BITARTRATE [Concomitant]
     Dosage: 10-750 MG AS NEEDED
     Route: 048

REACTIONS (8)
  - EYE INFECTION [None]
  - DECREASED APPETITE [None]
  - RASH [None]
  - DIARRHOEA [None]
  - ELECTROCARDIOGRAM QT PROLONGED [None]
  - FATIGUE [None]
  - ORAL PAIN [None]
  - WEIGHT DECREASED [None]
